FAERS Safety Report 13740862 (Version 3)
Quarter: 2018Q3

REPORT INFORMATION
  Report Type: Spontaneous
  Country: FR (occurrence: FR)
  Receive Date: 20170711
  Receipt Date: 20180816
  Transmission Date: 20181010
  Serious: Yes (Hospitalization, Other)
  Sender: FDA-Public Use
  Company Number: FR-ASTRAZENECA-2017SE69576

PATIENT
  Age: 16937 Day
  Sex: Male

DRUGS (20)
  1. CREON [Suspect]
     Active Substance: PANCRELIPASE AMYLASE\PANCRELIPASE LIPASE\PANCRELIPASE PROTEASE
     Indication: PANCREATIC FAILURE
     Route: 048
  2. IMUREL [Suspect]
     Active Substance: AZATHIOPRINE SODIUM
     Indication: PROPHYLAXIS AGAINST TRANSPLANT REJECTION
     Route: 048
     Dates: end: 20170609
  3. GEMCITABINE HYDROCHLORIDE. [Suspect]
     Active Substance: GEMCITABINE HYDROCHLORIDE
     Indication: ADENOCARCINOMA PANCREAS
     Dosage: 1740.0MG ONCE/SINGLE ADMINISTRATION
     Route: 042
     Dates: start: 20170609, end: 20170609
  4. TACROLIMUS. [Suspect]
     Active Substance: TACROLIMUS
     Indication: PROPHYLAXIS AGAINST TRANSPLANT REJECTION
     Dosage: 2 MG IN THE MORNING AND 2.5 MG IN THE EVENING
     Route: 048
  5. IXPRIM [Suspect]
     Active Substance: ACETAMINOPHEN\TRAMADOL HYDROCHLORIDE
     Indication: PAIN
     Route: 048
     Dates: start: 2017
  6. RAMIPRIL. [Suspect]
     Active Substance: RAMIPRIL
     Indication: NEPHROPATHY
     Route: 048
  7. CORTANCYL [Suspect]
     Active Substance: PREDNISONE
     Indication: PROPHYLAXIS AGAINST TRANSPLANT REJECTION
     Route: 048
  8. LYRICA [Suspect]
     Active Substance: PREGABALIN
     Route: 048
     Dates: start: 2017
  9. LEVOTHYROX [Suspect]
     Active Substance: LEVOTHYROXINE
     Indication: HYPOTHYROIDISM
     Dosage: 200UG/INHAL DAILY
     Route: 048
  10. PARACETAMOL [Suspect]
     Active Substance: ACETAMINOPHEN
     Indication: PAIN
     Dosage: 1.0G AS REQUIRED
     Route: 048
  11. OXALIPLATIN. [Suspect]
     Active Substance: OXALIPLATIN
     Indication: NEOPLASM MALIGNANT
     Dosage: 175.0MG ONCE/SINGLE ADMINISTRATION
     Route: 042
     Dates: start: 20170609, end: 20170609
  12. SOLU?MEDROL [Suspect]
     Active Substance: METHYLPREDNISOLONE SODIUM SUCCINATE
     Indication: PREMEDICATION
     Route: 042
     Dates: start: 20170609, end: 20170609
  13. ZOPHREN [Suspect]
     Active Substance: ONDANSETRON
     Indication: PROPHYLAXIS OF NAUSEA AND VOMITING
     Dosage: 2 MG/ML SOLUTION FOR INJECTION, VIAL OF 4 ML
     Route: 042
     Dates: start: 20170609, end: 20170609
  14. REPAGLINIDE. [Suspect]
     Active Substance: REPAGLINIDE
     Indication: DIABETES MELLITUS
     Route: 048
  15. BACTRIM [Suspect]
     Active Substance: SULFAMETHOXAZOLE\TRIMETHOPRIM
     Route: 048
     Dates: start: 20170612, end: 20170612
  16. ARANESP [Suspect]
     Active Substance: DARBEPOETIN ALFA
     Indication: ANAEMIA
     Route: 058
  17. INEXIUM [Suspect]
     Active Substance: ESOMEPRAZOLE
     Route: 048
     Dates: start: 2017
  18. EMEND [Suspect]
     Active Substance: APREPITANT
     Indication: VOMITING
     Dosage: 125.0MG ONCE/SINGLE ADMINISTRATION
     Route: 048
     Dates: start: 20170609, end: 20170609
  19. TOCOPHEROL [Suspect]
     Active Substance: TOCOPHEROL
     Indication: VITAMIN E DEFICIENCY
     Route: 048
  20. CACIT VITAMINE D3 [Suspect]
     Active Substance: CALCIUM CARBONATE\CHOLECALCIFEROL
     Indication: CALCIUM DEFICIENCY
     Route: 048

REACTIONS (7)
  - Hepatocellular injury [Not Recovered/Not Resolved]
  - Blood alkaline phosphatase increased [Not Recovered/Not Resolved]
  - Acute kidney injury [Recovering/Resolving]
  - Jaundice [Not Recovered/Not Resolved]
  - Cholestasis [Not Recovered/Not Resolved]
  - Transaminases increased [Not Recovered/Not Resolved]
  - Gamma-glutamyltransferase increased [Not Recovered/Not Resolved]

NARRATIVE: CASE EVENT DATE: 20170614
